FAERS Safety Report 11846219 (Version 1)
Quarter: 2015Q4

REPORT INFORMATION
  Report Type: Spontaneous
  Country: US (occurrence: US)
  Receive Date: 20151217
  Receipt Date: 20151217
  Transmission Date: 20160305
  Serious: No
  Sender: FDA-Public Use
  Company Number: US-NOVOPROD-459107

PATIENT
  Age: 73 Year
  Sex: Female

DRUGS (1)
  1. LEVEMIR [Suspect]
     Active Substance: INSULIN DETEMIR
     Indication: PRODUCT USED FOR UNKNOWN INDICATION
     Dosage: 36 U, QD
     Route: 058
     Dates: start: 20150701, end: 20150728

REACTIONS (2)
  - Night sweats [Recovered/Resolved]
  - Skin mass [Recovered/Resolved]
